FAERS Safety Report 5391954-8 (Version None)
Quarter: 2007Q3

REPORT INFORMATION
  Report Type: 
  Country: None (occurrence: None)
  Receive Date: 20070720
  Receipt Date: 20070709
  Transmission Date: 20080115
  Serious: Yes (Other)
  Sender: FDA-Public Use
  Company Number: PHEH2007US07128

PATIENT
  Age: 62 Year
  Sex: Male

DRUGS (5)
  1. ZELNORM [Suspect]
     Dosage: 6 MG, BID
     Route: 048
     Dates: start: 20061218, end: 20070201
  2. LISINOPRIL [Concomitant]
     Dosage: 20 MG, QD
     Route: 048
  3. LOVASTATIN [Concomitant]
     Dosage: 40 MG, QD
     Route: 048
  4. LEVOTHROID [Concomitant]
     Dosage: 0.075 MG, QD
     Route: 048
  5. ARTHROTEC [Concomitant]
     Dosage: 75 MG, BID
     Route: 048

REACTIONS (3)
  - DYSPNOEA [None]
  - HEART RATE INCREASED [None]
  - TRANSIENT ISCHAEMIC ATTACK [None]
